FAERS Safety Report 6404321-2 (Version None)
Quarter: 2009Q4

REPORT INFORMATION
  Report Type: 
  Country: None (occurrence: None)
  Receive Date: 20091016
  Receipt Date: 20091007
  Transmission Date: 20100525
  Serious: No
  Sender: FDA-Public Use
  Company Number: B0551977A

PATIENT
  Age: 17 Year
  Sex: Female

DRUGS (10)
  1. RELENZA [Suspect]
     Dosage: 10MG TWICE PER DAY
     Route: 055
     Dates: start: 20081224, end: 20081228
  2. IBRUPROFEN [Concomitant]
     Route: 048
     Dates: start: 20081224, end: 20081228
  3. UNKNOWN MEDICATION [Concomitant]
     Route: 048
  4. MUCODYNE [Concomitant]
     Route: 048
     Dates: start: 20081224, end: 20081228
  5. EBASTEL [Concomitant]
     Route: 048
     Dates: end: 20080525
  6. LAXOBERON [Concomitant]
     Route: 048
     Dates: start: 20080926, end: 20090501
  7. GARASONE [Concomitant]
     Route: 061
     Dates: start: 20081014
  8. UNKNOWN DRUG [Concomitant]
     Route: 048
     Dates: start: 20081224, end: 20081228
  9. NERISONA [Concomitant]
     Route: 061
     Dates: start: 20081210
  10. CHINESE MEDICINE [Concomitant]
     Route: 065

REACTIONS (3)
  - DRUG EXPOSURE DURING PREGNANCY [None]
  - LIVE BIRTH [None]
  - NO ADVERSE EVENT [None]
